FAERS Safety Report 13840911 (Version 2)
Quarter: 2017Q4

REPORT INFORMATION
  Report Type: Report from Study
  Country: US (occurrence: US)
  Receive Date: 20170807
  Receipt Date: 20171013
  Transmission Date: 20180320
  Serious: Yes (Hospitalization)
  Sender: FDA-Public Use
  Company Number: US-ASTRAZENECA-2017SE80181

PATIENT
  Age: 924 Month
  Sex: Female
  Weight: 115.5 kg

DRUGS (2)
  1. AZD2171 [Suspect]
     Active Substance: CEDIRANIB
     Indication: OVARIAN CANCER
     Dosage: TOTAL DOSE ADMINISTERED THIS COURSE 360 MG
     Route: 048
     Dates: start: 20170628, end: 20170710
  2. AZD2281 [Suspect]
     Active Substance: OLAPARIB
     Indication: OVARIAN CANCER
     Dosage: TOTAL DOSE ADMINISTERED THIS COURSE 4800 MG
     Route: 048
     Dates: start: 20170628, end: 20170710

REACTIONS (1)
  - Angina pectoris [Recovering/Resolving]

NARRATIVE: CASE EVENT DATE: 20170711
